FAERS Safety Report 4869992-0 (Version None)
Quarter: 2005Q4

REPORT INFORMATION
  Report Type: 
  Country: None (occurrence: None)
  Receive Date: 20051227
  Receipt Date: 20051220
  Transmission Date: 20060501
  Serious: Yes (Hospitalization)
  Sender: FDA-Public Use
  Company Number: CHPA2005US08381

PATIENT
  Age: 62 Year
  Sex: Male
  Weight: 86.2 kg

DRUGS (8)
  1. NICOTINE [Suspect]
     Indication: SMOKING CESSATION THERAPY
     Dosage: SEE IMAGE
     Route: 062
     Dates: start: 20051217
  2. FLOMAX [Concomitant]
  3. AVODART [Concomitant]
  4. PREVACID [Concomitant]
  5. RELAFEN [Concomitant]
  6. OXYCODONE (OXYCODONE) [Concomitant]
  7. URECHOLINE [Concomitant]
  8. VITAMINS (NO INGREDIENTS/SUBSTANCES) [Concomitant]

REACTIONS (4)
  - COUGH [None]
  - LOCAL SWELLING [None]
  - RESPIRATORY TRACT INFECTION FUNGAL [None]
  - SINUSITIS [None]
